FAERS Safety Report 24873123 (Version 1)
Quarter: 2025Q1

REPORT INFORMATION
  Report Type: Spontaneous
  Country: BE (occurrence: BE)
  Receive Date: 20250122
  Receipt Date: 20250122
  Transmission Date: 20250408
  Serious: Yes (Other)
  Sender: MYLAN
  Company Number: BE-EUROCEPT-EC20250003

PATIENT
  Age: 74 Year
  Sex: Female

DRUGS (9)
  1. OLANZAPINE [Suspect]
     Active Substance: OLANZAPINE
     Indication: Acute psychosis
     Dosage: 2.5 MILLIGRAM, QD (STARTED WITH A LOW DOSE OF OLANZAPINE OF 2.5 MG)
     Route: 065
  2. OLANZAPINE [Suspect]
     Active Substance: OLANZAPINE
     Dosage: 5 MILLIGRAM, QD (THE DOSE WAS INCREASED TO 5 MG ON THE FOLLOWING DAY)
     Route: 065
  3. OLANZAPINE [Suspect]
     Active Substance: OLANZAPINE
     Route: 065
  4. OMEPRAZOLE [Suspect]
     Active Substance: OMEPRAZOLE
     Indication: Product used for unknown indication
     Route: 065
  5. LORMETAZEPAM [Concomitant]
     Active Substance: LORMETAZEPAM
     Route: 065
  6. BISOPROLOL [Concomitant]
     Active Substance: BISOPROLOL
     Route: 065
  7. CALCIUM [Concomitant]
     Active Substance: CALCIUM
     Route: 065
  8. VITAMIN D [Concomitant]
     Active Substance: VITAMIN D NOS
     Route: 065
  9. AMOXICILLIN\CLAVULANIC ACID [Concomitant]
     Active Substance: AMOXICILLIN\CLAVULANIC ACID
     Indication: COVID-19 pneumonia
     Dosage: UNK UNK, QW (FOR 7 DAYS)
     Route: 065

REACTIONS (9)
  - Enterococcal infection [Unknown]
  - Pancytopenia [Recovering/Resolving]
  - Thrombocytopenia [Recovered/Resolved]
  - Neutropenia [Unknown]
  - Leukopenia [Recovered/Resolved]
  - Escherichia infection [Unknown]
  - Normochromic normocytic anaemia [Unknown]
  - Anaemia [Recovering/Resolving]
  - Pyrexia [Recovered/Resolved]
